FAERS Safety Report 20476325 (Version 3)
Quarter: 2022Q2

REPORT INFORMATION
  Report Type: Report from Study
  Country: DE (occurrence: None)
  Receive Date: 20220215
  Receipt Date: 20220401
  Transmission Date: 20220721
  Serious: Yes (Life-Threatening, Hospitalization)
  Sender: FDA-Public Use
  Company Number: 2021A722017

PATIENT
  Age: 47 Year
  Sex: Female

DRUGS (20)
  1. DURVALUMAB [Suspect]
     Active Substance: DURVALUMAB
     Indication: Non-small cell lung cancer
     Route: 042
     Dates: start: 20210422, end: 20210422
  2. DURVALUMAB [Suspect]
     Active Substance: DURVALUMAB
     Indication: Non-small cell lung cancer
     Route: 042
     Dates: start: 20210513, end: 20210513
  3. DURVALUMAB [Suspect]
     Active Substance: DURVALUMAB
     Indication: Non-small cell lung cancer
     Route: 042
     Dates: start: 20210604, end: 20210604
  4. DURVALUMAB [Suspect]
     Active Substance: DURVALUMAB
     Indication: Non-small cell lung cancer
     Route: 042
     Dates: start: 20210625, end: 20210625
  5. CARBOPLATIN [Suspect]
     Active Substance: CARBOPLATIN
     Indication: Non-small cell lung cancer
     Dosage: 6 AUC EVERY THREE WEEKS
     Route: 042
     Dates: start: 20210422, end: 20210422
  6. CARBOPLATIN [Suspect]
     Active Substance: CARBOPLATIN
     Indication: Non-small cell lung cancer
     Dosage: 6 AUC EVERY THREE WEEKS
     Route: 042
     Dates: start: 20210513, end: 20210513
  7. CARBOPLATIN [Suspect]
     Active Substance: CARBOPLATIN
     Indication: Non-small cell lung cancer
     Dosage: 6 AUC EVERY THREE WEEKS
     Route: 042
     Dates: start: 20210604, end: 20210604
  8. CARBOPLATIN [Suspect]
     Active Substance: CARBOPLATIN
     Indication: Non-small cell lung cancer
     Dosage: 6 AUC EVERY THREE WEEKS
     Route: 042
     Dates: start: 20210625, end: 20210625
  9. PACLITAXEL [Suspect]
     Active Substance: PACLITAXEL
     Indication: Non-small cell lung cancer
     Route: 042
     Dates: start: 20210422, end: 20210422
  10. PACLITAXEL [Suspect]
     Active Substance: PACLITAXEL
     Indication: Non-small cell lung cancer
     Route: 042
     Dates: start: 20210513, end: 20210513
  11. PACLITAXEL [Suspect]
     Active Substance: PACLITAXEL
     Indication: Non-small cell lung cancer
     Route: 042
     Dates: start: 20210604, end: 20210604
  12. PACLITAXEL [Suspect]
     Active Substance: PACLITAXEL
     Indication: Non-small cell lung cancer
     Route: 042
     Dates: start: 20210625, end: 20210625
  13. BISOPROLOL FUMARATE [Concomitant]
     Active Substance: BISOPROLOL FUMARATE
     Indication: Hypertension
     Dates: start: 20200101
  14. CANDESARTAN CILEXETIL [Concomitant]
     Active Substance: CANDESARTAN CILEXETIL
     Indication: Hypertension
     Dates: start: 20200101
  15. L-THYROXIN JOD HEXAL - LEVOTHYROXIN NATRIUM [Concomitant]
     Indication: Hypothyroidism
     Dates: start: 20200101
  16. L-THYROX JOD HEXAL - POTASSIUM IODIDE [Concomitant]
     Indication: Hypothyroidism
     Dates: start: 20200101
  17. SPIOLTO RESPIMAT - TIOTROPIUM [Concomitant]
     Indication: Chronic obstructive pulmonary disease
     Dates: start: 20200101
  18. SPIOLTO RESPIMAT - OLODATEROL [Concomitant]
     Indication: Chronic obstructive pulmonary disease
     Dates: start: 20200101
  19. ALBUTEROL [Concomitant]
     Active Substance: ALBUTEROL
     Indication: Chronic obstructive pulmonary disease
     Dosage: 0.100 MG 2-3 INHALES 0-0-1-1
     Dates: start: 20200101
  20. LOPERAMIDE [Concomitant]
     Active Substance: LOPERAMIDE
     Indication: Diarrhoea
     Dates: start: 20210430

REACTIONS (2)
  - Hepatic failure [Recovered/Resolved]
  - Drug-induced liver injury [Recovered/Resolved]

NARRATIVE: CASE EVENT DATE: 20210903
